FAERS Safety Report 7097068-3 (Version None)
Quarter: 2010Q4

REPORT INFORMATION
  Report Type: 
  Country: None (occurrence: None)
  Receive Date: 20101111
  Receipt Date: 20101105
  Transmission Date: 20110411
  Serious: Yes (Other)
  Sender: FDA-Public Use
  Company Number: US-PFIZER INC-2010102962

PATIENT
  Sex: Female
  Weight: 47.6 kg

DRUGS (1)
  1. ZYVOX [Suspect]
     Indication: STAPHYLOCOCCAL INFECTION
     Dosage: 600 MG, 2X/DAY
     Route: 048
     Dates: start: 20091201

REACTIONS (5)
  - APHAGIA [None]
  - DYSPHAGIA [None]
  - GINGIVAL BLEEDING [None]
  - ORAL PAIN [None]
  - STOMATITIS [None]
